FAERS Safety Report 9628079 (Version 2)
Quarter: 2013Q4

REPORT INFORMATION
  Report Type: Spontaneous
  Country: FR (occurrence: FR)
  Receive Date: 20131017
  Receipt Date: 20131017
  Transmission Date: 20140711
  Serious: Yes (Death, Hospitalization)
  Sender: FDA-Public Use
  Company Number: FR-AMGEN-FRASP2013047252

PATIENT
  Age: 59 Year
  Sex: Female

DRUGS (12)
  1. XGEVA [Suspect]
     Indication: METASTASES TO BONE
     Dosage: 120 MG, UNK
     Route: 058
     Dates: start: 20130530
  2. ARANESP [Concomitant]
  3. OROCAL VITAMINE D3 [Concomitant]
  4. OMEPRAZOLE [Concomitant]
     Dosage: 20 UNK, UNK
  5. BISOPROLOL [Concomitant]
     Dosage: 10 UNK, UNK
  6. ZANIDIP [Concomitant]
     Dosage: 20 MG, UNK
  7. BICARBONATE DE SODIUM AGUETTANT [Concomitant]
  8. FUMAFER [Concomitant]
  9. LYRICA [Concomitant]
  10. KAYEXALATE [Concomitant]
  11. UN-ALFA [Concomitant]
  12. VITAMIN C                          /00008001/ [Concomitant]

REACTIONS (2)
  - Cardiac failure [Fatal]
  - Hypocalcaemia [Not Recovered/Not Resolved]
